FAERS Safety Report 9695888 (Version 1)
Quarter: 2013Q4

REPORT INFORMATION
  Report Type: Spontaneous
  Country: US (occurrence: None)
  Receive Date: 20131115
  Receipt Date: 20131115
  Transmission Date: 20140711
  Serious: Yes (Other)
  Sender: FDA-Public Use
  Company Number: 2003454

PATIENT
  Age: 46 Year
  Sex: Male

DRUGS (8)
  1. PHENOBARBITAL [Suspect]
     Dosage: NOT OTHERWISE SPECIFIED
     Route: 042
  2. PHENOBARBITAL [Suspect]
     Dosage: NOT OTHERWISE SPECIFIED
     Route: 042
  3. LORAZEPAM [Suspect]
     Indication: STATUS EPILEPTICUS
     Dosage: NOT OTHERWISE SPECIFIED
     Route: 042
  4. LORAZEPAM [Suspect]
     Dosage: NOT OTHERWISE SPECIFIED
     Route: 042
  5. PENTOBARBITAL [Suspect]
     Route: 065
  6. PENTOBARBITAL [Suspect]
     Route: 065
  7. PROPOFOL [Concomitant]
  8. PHENYTOIN [Concomitant]

REACTIONS (4)
  - Renal failure acute [None]
  - Hepatic failure [None]
  - Shock [None]
  - Lactic acidosis [None]
